FAERS Safety Report 7984171-6 (Version None)
Quarter: 2011Q4

REPORT INFORMATION
  Report Type: 
  Country: None (occurrence: None)
  Receive Date: 20111216
  Receipt Date: 20111206
  Transmission Date: 20120403
  Serious: Yes (Other)
  Sender: FDA-Public Use
  Company Number: FR-RANBAXY-2011RR-50969

PATIENT
  Age: 66 Year
  Sex: Male

DRUGS (7)
  1. LEVOFLOXACIN [Suspect]
     Indication: PYREXIA
  2. BUDESONIDE [Suspect]
     Indication: ASTHMA
     Dosage: 3 DF, TID
     Route: 055
  3. PREDNISOLONE [Suspect]
     Indication: ASTHMA
     Dosage: 20 MG/DAY
     Route: 048
     Dates: start: 20100101
  4. ZITHROMAX [Suspect]
     Indication: PYREXIA
  5. LEVOFLOXACIN [Suspect]
     Indication: COUGH
     Dosage: 500 MG, BID
     Route: 048
     Dates: start: 20111024, end: 20111031
  6. ZITHROMAX [Suspect]
     Indication: COUGH
     Dosage: 250 MG/DAY
     Route: 048
     Dates: start: 20101024
  7. ZOCOR [Suspect]
     Indication: HYPERCHOLESTEROLAEMIA
     Dosage: 20 MG/DAY
     Route: 048

REACTIONS (1)
  - TENDONITIS [None]
